FAERS Safety Report 15349695 (Version 1)
Quarter: 2018Q3

REPORT INFORMATION
  Report Type: Spontaneous
  Country: SE (occurrence: SE)
  Receive Date: 20180904
  Receipt Date: 20180904
  Transmission Date: 20181010
  Serious: Yes (Other)
  Sender: FDA-Public Use
  Company Number: SE-TAKEDA-2018TUS026291

PATIENT
  Age: 15 Year
  Sex: Male

DRUGS (2)
  1. ENTYVIO [Suspect]
     Active Substance: VEDOLIZUMAB
     Dosage: UNK
     Route: 065
     Dates: start: 20180816
  2. ENTYVIO [Suspect]
     Active Substance: VEDOLIZUMAB
     Indication: COLITIS ULCERATIVE
     Dosage: UNK
     Route: 065
     Dates: start: 20180320

REACTIONS (9)
  - JC polyomavirus test positive [Unknown]
  - Weight decreased [Unknown]
  - Drug level decreased [Unknown]
  - Tubulointerstitial nephritis [Unknown]
  - Renal disorder [Unknown]
  - C-reactive protein increased [Recovering/Resolving]
  - Fatigue [Unknown]
  - Blood creatinine increased [Recovering/Resolving]
  - Off label use [Unknown]

NARRATIVE: CASE EVENT DATE: 2018
